FAERS Safety Report 5122321-X (Version None)
Quarter: 2006Q4

REPORT INFORMATION
  Report Type: 
  Country: None (occurrence: None)
  Receive Date: 20061003
  Receipt Date: 20060920
  Transmission Date: 20070319
  Serious: Yes (Other)
  Sender: FDA-Public Use
  Company Number: 2006-148041-NL

PATIENT
  Age: 39 Year
  Sex: Female

DRUGS (2)
  1. ORGALUTRAN [Suspect]
     Indication: INFERTILITY
     Dates: start: 20060901, end: 20060920
  2. PUREGON [Concomitant]

REACTIONS (1)
  - ANAPHYLACTIC REACTION [None]
